FAERS Safety Report 19808312 (Version 31)
Quarter: 2024Q2

REPORT INFORMATION
  Report Type: Report from Study
  Country: MX (occurrence: MX)
  Receive Date: 20210908
  Receipt Date: 20240512
  Transmission Date: 20240716
  Serious: Yes (Hospitalization, Other)
  Sender: FDA-Public Use
  Company Number: MX-TAKEDA-MX202034386

PATIENT
  Age: 7 Year
  Sex: Male
  Weight: 30 kg

DRUGS (15)
  1. IDURSULFASE [Suspect]
     Active Substance: IDURSULFASE
     Indication: Mucopolysaccharidosis II
     Dosage: 3 DOSAGE FORM, 1/WEEK
     Route: 042
     Dates: start: 201408
  2. IDURSULFASE [Suspect]
     Active Substance: IDURSULFASE
     Dosage: 2 DOSAGE FORM, 1/WEEK
     Route: 042
     Dates: start: 20201007
  3. IDURSULFASE [Suspect]
     Active Substance: IDURSULFASE
     Dosage: 12 MILLIGRAM, 1/WEEK
     Route: 042
  4. IDURSULFASE [Suspect]
     Active Substance: IDURSULFASE
     Dosage: 3 DOSAGE FORM, 1/WEEK
     Route: 042
  5. IDURSULFASE [Suspect]
     Active Substance: IDURSULFASE
     Dosage: 2 DOSAGE FORM, 1/WEEK
     Route: 042
  6. LEVETIRACETAM [Concomitant]
     Active Substance: LEVETIRACETAM
     Indication: Seizure
     Dosage: 1.75 GRAM, QD
     Route: 048
  7. LEVETIRACETAM [Concomitant]
     Active Substance: LEVETIRACETAM
     Dosage: 750 MILLIGRAM, QD
     Route: 048
  8. LEVETIRACETAM [Concomitant]
     Active Substance: LEVETIRACETAM
     Dosage: 2 GRAM, BID
     Route: 048
  9. LEVETIRACETAM [Concomitant]
     Active Substance: LEVETIRACETAM
     Dosage: 1000 MILLIGRAM
     Route: 065
  10. LAMOTRIGINE [Concomitant]
     Active Substance: LAMOTRIGINE
     Dosage: 50 MILLIGRAM, Q12H
  11. FLUOXETINE [Concomitant]
     Active Substance: FLUOXETINE HYDROCHLORIDE
     Dosage: 20 MILLIGRAM, QD
     Route: 065
  12. FLUOXETINE [Concomitant]
     Active Substance: FLUOXETINE HYDROCHLORIDE
     Dosage: 1 DOSAGE FORM, QD
     Route: 065
  13. OXCARBAZEPINE [Concomitant]
     Active Substance: OXCARBAZEPINE
     Dosage: 200 MILLIGRAM
     Route: 065
  14. HYDROXYZINE [Concomitant]
     Active Substance: HYDROXYZINE HYDROCHLORIDE
     Dosage: 1 DOSAGE FORM, QD
     Route: 065
  15. POLYETHYLENE GLYCOLS [Concomitant]
     Active Substance: POLYETHYLENE GLYCOLS
     Indication: Abdominal discomfort
     Dosage: 7.5 MILLILITER
     Route: 048

REACTIONS (41)
  - Complication associated with device [Recovered/Resolved]
  - Malaise [Not Recovered/Not Resolved]
  - Hypertensive crisis [Recovered/Resolved]
  - Spinal cord compression [Recovering/Resolving]
  - Seizure [Unknown]
  - Hypoxia [Unknown]
  - Body temperature increased [Not Recovered/Not Resolved]
  - Vascular device infection [Recovered/Resolved]
  - Cervical spinal stenosis [Not Recovered/Not Resolved]
  - Intellectual disability [Not Recovered/Not Resolved]
  - Epilepsy [Not Recovered/Not Resolved]
  - Device related infection [Recovering/Resolving]
  - Pyrexia [Recovered/Resolved]
  - Decreased immune responsiveness [Unknown]
  - Influenza [Recovering/Resolving]
  - Somnolence [Recovered/Resolved]
  - Productive cough [Recovered/Resolved]
  - Oropharyngeal discomfort [Recovered/Resolved]
  - Gait disturbance [Unknown]
  - Respiratory tract infection [Not Recovered/Not Resolved]
  - Nasopharyngitis [Recovering/Resolving]
  - Pharyngitis [Recovering/Resolving]
  - Muscle spasms [Unknown]
  - Varicella [Unknown]
  - Oral infection [Unknown]
  - Viral infection [Unknown]
  - Gastrooesophageal reflux disease [Not Recovered/Not Resolved]
  - Bacterial infection [Unknown]
  - Tremor [Recovered/Resolved]
  - Infusion related reaction [Unknown]
  - Diarrhoea [Recovered/Resolved]
  - Nightmare [Recovering/Resolving]
  - Neurological decompensation [Not Recovered/Not Resolved]
  - Asthenia [Not Recovered/Not Resolved]
  - Mastication disorder [Not Recovered/Not Resolved]
  - Muscle atrophy [Not Recovered/Not Resolved]
  - Dyspnoea [Unknown]
  - Cyanosis [Unknown]
  - Product availability issue [Recovering/Resolving]
  - Product dose omission issue [Not Recovered/Not Resolved]
  - Inappropriate schedule of product administration [Not Recovered/Not Resolved]

NARRATIVE: CASE EVENT DATE: 20201014
